FAERS Safety Report 6239531-0 (Version None)
Quarter: 2009Q2

REPORT INFORMATION
  Report Type: 
  Country: None (occurrence: None)
  Receive Date: 20090622
  Receipt Date: 20090610
  Transmission Date: 20091009
  Serious: Yes (Hospitalization, Other)
  Sender: FDA-Public Use
  Company Number: PHHY2009JP17647

PATIENT
  Sex: Male
  Weight: 50 kg

DRUGS (14)
  1. TEGRETOL [Suspect]
     Indication: BIPOLAR DISORDER
     Dosage: 50 MG DAILY
     Route: 048
     Dates: start: 20090324, end: 20090325
  2. TEGRETOL [Suspect]
     Dosage: 100 MG, DAILY
     Route: 048
     Dates: start: 20090326, end: 20090401
  3. TEGRETOL [Suspect]
     Dosage: 200 MG, DAILY
     Route: 048
     Dates: start: 20090402, end: 20090408
  4. TEGRETOL [Suspect]
     Dosage: 150 MG, DAILY
     Route: 048
     Dates: start: 20090409, end: 20090416
  5. TEGRETOL [Suspect]
     Dosage: 100 MG, DAILY
     Route: 048
     Dates: start: 20090416, end: 20090420
  6. TEGRETOL [Suspect]
     Dosage: 200 MG DAILY
     Route: 048
     Dates: start: 20090402, end: 20090408
  7. TEGRETOL [Suspect]
     Dosage: 100 MG DAILY
     Route: 048
     Dates: start: 20090409, end: 20090416
  8. MAGMITT [Concomitant]
     Dosage: 1320 MG, UNK
     Route: 048
     Dates: start: 20060901
  9. REMICUT [Concomitant]
     Dosage: UNK
     Route: 048
     Dates: start: 20060801
  10. HARNAL [Concomitant]
     Dosage: UNK
     Dates: start: 20060801
  11. MYSLEE [Concomitant]
     Dosage: UNK
     Route: 048
     Dates: start: 20060901
  12. FERROMIA [Concomitant]
     Dosage: UNK
     Route: 048
     Dates: start: 20090212, end: 20090420
  13. CLONAZEPAM [Concomitant]
     Dosage: UNK
     Route: 048
     Dates: start: 20090206
  14. WARFARIN SODIUM [Concomitant]
     Indication: SINUS BRADYCARDIA
     Dosage: UNK
     Route: 048
     Dates: start: 20060601

REACTIONS (10)
  - DERMATITIS EXFOLIATIVE [None]
  - DIZZINESS [None]
  - DRUG ERUPTION [None]
  - ERYTHEMA [None]
  - LYMPHADENOPATHY [None]
  - LYMPHOCYTE MORPHOLOGY ABNORMAL [None]
  - LYMPHOCYTOSIS [None]
  - PYREXIA [None]
  - RASH GENERALISED [None]
  - WHITE BLOOD CELL COUNT INCREASED [None]
